FAERS Safety Report 19700026 (Version 12)
Quarter: 2023Q1

REPORT INFORMATION
  Report Type: Report from Study
  Country: CA (occurrence: CA)
  Receive Date: 20210813
  Receipt Date: 20230215
  Transmission Date: 20230417
  Serious: Yes (Other)
  Sender: FDA-Public Use
  Company Number: CA-TAKEDA-2021TUS050588

PATIENT
  Age: 51 Year
  Sex: Female

DRUGS (2)
  1. VEDOLIZUMAB [Suspect]
     Active Substance: VEDOLIZUMAB
     Indication: Crohn^s disease
     Dosage: 300 MILLIGRAM
     Route: 042
     Dates: start: 20210525
  2. VEDOLIZUMAB [Suspect]
     Active Substance: VEDOLIZUMAB
     Indication: Crohn^s disease
     Dosage: UNK
     Route: 058
     Dates: start: 20220810, end: 20230208

REACTIONS (10)
  - Haematochezia [Unknown]
  - Surgical failure [Unknown]
  - Medical device site infection [Unknown]
  - Diarrhoea [Unknown]
  - Complication associated with device [Unknown]
  - Medical device site erythema [Unknown]
  - Fungal infection [Unknown]
  - Streptococcal infection [Unknown]
  - Injection site pain [Unknown]
  - Nasopharyngitis [Unknown]

NARRATIVE: CASE EVENT DATE: 20210811
